FAERS Safety Report 17097413 (Version 2)
Quarter: 2019Q4

REPORT INFORMATION
  Report Type: Spontaneous
  Country: FR (occurrence: FR)
  Receive Date: 20191202
  Receipt Date: 20191203
  Transmission Date: 20200122
  Serious: Yes (Hospitalization)
  Sender: FDA-Public Use
  Company Number: FR-MYLANLABS-2019M1116533

PATIENT
  Age: 61 Year
  Sex: Female
  Weight: 38 kg

DRUGS (4)
  1. GABAPENTIN. [Suspect]
     Active Substance: GABAPENTIN
     Indication: PRODUCT USED FOR UNKNOWN INDICATION
     Dosage: 800 MILLIGRAM, TOTAL
     Route: 048
     Dates: start: 20190604, end: 20190604
  2. DEPAMIDE [Suspect]
     Active Substance: VALPROMIDE
     Indication: PRODUCT USED FOR UNKNOWN INDICATION
     Dosage: 300 MILLIGRAM, TOTAL
     Route: 048
     Dates: start: 20190604, end: 20190604
  3. NEULEPTIL                          /00038401/ [Suspect]
     Active Substance: PERICIAZINE
     Indication: PRODUCT USED FOR UNKNOWN INDICATION
     Dosage: 25 GTT DROPS, TOTAL
     Route: 048
     Dates: start: 20190604, end: 20190604
  4. LOXAPAC                            /00401801/ [Suspect]
     Active Substance: LOXAPINE
     Indication: PRODUCT USED FOR UNKNOWN INDICATION
     Dosage: 25 MILLIGRAM, TOTAL
     Route: 048
     Dates: start: 20190604, end: 20190604

REACTIONS (4)
  - Coma [Recovering/Resolving]
  - Tachycardia [Recovering/Resolving]
  - Respiratory acidosis [Recovering/Resolving]
  - Wrong drug [Unknown]

NARRATIVE: CASE EVENT DATE: 20190604
